FAERS Safety Report 7124836 (Version 4)
Quarter: 2020Q3

REPORT INFORMATION
  Report Type: Report from Study
  Country: US (occurrence: US)
  Receive Date: 20090922
  Receipt Date: 20091210
  Transmission Date: 20201105
  Serious: Yes (Life-Threatening, Hospitalization)
  Sender: FDA-Public Use
  Company Number: US-JNJFOC-20090905280

PATIENT
  Age: 16 Year
  Sex: Male
  Weight: 49.5 kg

DRUGS (15)
  1. NASACORT [Concomitant]
     Active Substance: TRIAMCINOLONE ACETONIDE
     Indication: BRONCHIAL HYPERREACTIVITY
     Route: 065
  2. CISAPRIDE [Suspect]
     Active Substance: CISAPRIDE
     Route: 048
     Dates: start: 20010725
  3. CISAPRIDE [Suspect]
     Active Substance: CISAPRIDE
     Indication: GASTROOESOPHAGEAL REFLUX DISEASE
     Route: 048
     Dates: start: 20010725
  4. TEGRETOL [Concomitant]
     Active Substance: CARBAMAZEPINE
     Dosage: 15 CC AM, 13 CC AFTERNOON, 15 CC NIGHT
     Route: 065
  5. FLOVENT [Concomitant]
     Active Substance: FLUTICASONE PROPIONATE
     Indication: BRONCHIAL HYPERREACTIVITY
     Route: 065
  6. GUAIFENESIN. [Concomitant]
     Active Substance: GUAIFENESIN
     Indication: COUGH
     Dosage: 10 CC 1 TO 2 PER DAY AS NECESSARY
     Route: 048
  7. TEGRETOL [Concomitant]
     Active Substance: CARBAMAZEPINE
     Route: 065
  8. TEGRETOL [Concomitant]
     Active Substance: CARBAMAZEPINE
     Route: 065
  9. LACTULOSE. [Concomitant]
     Active Substance: LACTULOSE
     Indication: CONSTIPATION
     Route: 065
  10. TEGRETOL [Concomitant]
     Active Substance: CARBAMAZEPINE
     Indication: SEIZURE
     Route: 065
  11. TEGRETOL [Concomitant]
     Active Substance: CARBAMAZEPINE
     Route: 065
  12. TEGRETOL [Concomitant]
     Active Substance: CARBAMAZEPINE
     Route: 065
  13. TEGRETOL [Concomitant]
     Active Substance: CARBAMAZEPINE
     Dosage: DOSE ADJUSTMENT 14 CC IN THE MORNING, 13 CC AFTERNOON AND 14 CC NIGHT
     Route: 065
  14. XOPENEX [Concomitant]
     Active Substance: LEVALBUTEROL HYDROCHLORIDE
     Indication: BRONCHIAL HYPERREACTIVITY
     Route: 065
  15. DRISDOL [Concomitant]
     Active Substance: ERGOCALCIFEROL
     Indication: BONE DENSITY DECREASED
     Route: 065

REACTIONS (3)
  - Respiratory distress [Recovering/Resolving]
  - Pneumonia [Not Recovered/Not Resolved]
  - Influenza [Not Recovered/Not Resolved]

NARRATIVE: CASE EVENT DATE: 20090905
